FAERS Safety Report 4665805-0 (Version None)
Quarter: 2005Q2

REPORT INFORMATION
  Report Type: 
  Country: None (occurrence: None)
  Receive Date: 20050519
  Receipt Date: 20050415
  Transmission Date: 20051028
  Serious: No
  Sender: FDA-Public Use
  Company Number: US-GLAXOSMITHKLINE-A0554405A

PATIENT
  Age: 64 Year
  Sex: Female

DRUGS (5)
  1. LOTRONEX [Suspect]
     Indication: IRRITABLE BOWEL SYNDROME
     Route: 048
     Dates: start: 20040201
  2. PREMARIN [Concomitant]
  3. INDERAL [Concomitant]
  4. DIOVAN [Concomitant]
  5. QUININE SULPHATE [Concomitant]

REACTIONS (1)
  - CONSTIPATION [None]
